FAERS Safety Report 9250338 (Version 1)
Quarter: 2013Q1

REPORT INFORMATION
  Report Type: Spontaneous
  Country: US (occurrence: None)
  Receive Date: 20130305
  Receipt Date: 20130305
  Transmission Date: 20140127
  Serious: Yes (Other)
  Sender: FDA-Public Use
  Company Number: 163-21880-12062826

PATIENT
  Age: 72 Year
  Sex: Male
  Weight: 93.44 kg

DRUGS (1)
  1. REVLIMID [Suspect]
     Indication: PLASMA CELL MYELOMA
     Dosage: 25 MG, 1 IN 1 D, PO
     Route: 048
     Dates: start: 200901, end: 2011

REACTIONS (3)
  - Asthenia [None]
  - Asthenia [None]
  - Dyspnoea [None]
